FAERS Safety Report 4844938-X (Version None)
Quarter: 2005Q4

REPORT INFORMATION
  Report Type: 
  Country: None (occurrence: None)
  Receive Date: 20051205
  Receipt Date: 20051123
  Transmission Date: 20060501
  Serious: Yes (Hospitalization)
  Sender: FDA-Public Use
  Company Number: FR-BRISTOL-MYERS SQUIBB COMPANY-13195110

PATIENT
  Age: 2 Year
  Sex: Male

DRUGS (17)
  1. AMIKLIN POWDER [Suspect]
     Indication: INFECTION
     Route: 042
     Dates: start: 20050818, end: 20050822
  2. EFFERALGAN [Suspect]
     Dates: start: 20050818, end: 20050819
  3. NUREFLEX [Suspect]
     Dates: start: 20050818, end: 20050819
  4. ADVIL [Suspect]
     Dates: start: 20050819, end: 20050822
  5. CLAFORAN [Suspect]
     Dosage: 19-AUG-2005 TO 31-AUG-2005, RESTARTED 08-SEP-2005 STOPPED 16-SEP-2005
     Dates: start: 20050819, end: 20050916
  6. VANCOMYCIN [Suspect]
     Dosage: GIVEN 19-AUG TO 22-AUG-2005, THEN GIVEN ON 22-AUG-2005, 09-SEP-2005, 16-SEP-2005 AND 20-SEP-2005
     Dates: start: 20050819, end: 20050920
  7. LASILIX [Suspect]
     Dates: start: 20050822
  8. ORACILLIN [Suspect]
     Dates: start: 20050907
  9. GENTAMICIN [Suspect]
     Dosage: 08-SEP-2005, 09-SEP, 12-SEP, 13-SEP, 16-SEP, 17-SEP AND 20-SEP-2005.
     Route: 042
     Dates: start: 20050908, end: 20050920
  10. SOLU-MEDROL [Suspect]
     Route: 040
     Dates: start: 20050910, end: 20050914
  11. CORTANCYL [Suspect]
     Dates: start: 20050915, end: 20050926
  12. FORTUM [Suspect]
     Dates: start: 20050917, end: 20050919
  13. CIFLOX [Suspect]
     Route: 042
     Dates: start: 20050919, end: 20051005
  14. CIFLOX [Suspect]
     Route: 048
     Dates: start: 20051005, end: 20051007
  15. CLAVENTIN [Suspect]
     Dates: start: 20050919, end: 20050926
  16. JOSACINE [Suspect]
     Dates: start: 20051004
  17. FOLDINE [Concomitant]

REACTIONS (4)
  - CONVULSION [None]
  - RENAL FAILURE ACUTE [None]
  - RENAL TUBULAR DISORDER [None]
  - RESPIRATORY DISTRESS [None]
